FAERS Safety Report 9296145 (Version 1)
Quarter: 2013Q2

REPORT INFORMATION
  Report Type: Spontaneous
  Country: JP (occurrence: JP)
  Receive Date: 20130517
  Receipt Date: 20130517
  Transmission Date: 20140414
  Serious: No
  Sender: FDA-Public Use
  Company Number: JP-JNJFOC-20130505273

PATIENT
  Sex: 0

DRUGS (1)
  1. ONEDURO [Suspect]
     Indication: PAIN
     Route: 062

REACTIONS (1)
  - Drug prescribing error [Unknown]
